FAERS Safety Report 7493093-9 (Version None)
Quarter: 2011Q2

REPORT INFORMATION
  Report Type: 
  Country: None (occurrence: None)
  Receive Date: 20110516
  Receipt Date: 20101209
  Transmission Date: 20111010
  Serious: Yes (Life-Threatening, Hospitalization, Disabling)
  Sender: FDA-Public Use
  Company Number: 2006-150936-NL

PATIENT
  Age: 18 Year
  Sex: Female
  Weight: 48 kg

DRUGS (2)
  1. MERCILON (DESOGESTREL/ETHINYLESTRADIOL /00570801/) [Suspect]
     Indication: CONTRACEPTION
     Dosage: 1 DF, QD, PO
     Route: 048
     Dates: start: 19960910, end: 19981101
  2. AMOXIL [Concomitant]

REACTIONS (12)
  - WHITE BLOOD CELL COUNT DECREASED [None]
  - SICCA SYNDROME [None]
  - HYPOAESTHESIA [None]
  - ASTHMA [None]
  - MIGRAINE [None]
  - ANGIOPATHY [None]
  - VISUAL IMPAIRMENT [None]
  - DEPRESSION [None]
  - RAYNAUD'S PHENOMENON [None]
  - DRY SKIN [None]
  - BRAIN NEOPLASM [None]
  - SJOGREN'S SYNDROME [None]
